FAERS Safety Report 6933265-2 (Version None)
Quarter: 2010Q3

REPORT INFORMATION
  Report Type: 
  Country: None (occurrence: None)
  Receive Date: 20100820
  Receipt Date: 20100819
  Transmission Date: 20110219
  Serious: Yes (Disabling)
  Sender: FDA-Public Use
  Company Number: JP-SP-2010-04140

PATIENT
  Age: 51 Year
  Sex: Female

DRUGS (1)
  1. IMMUCYST [Suspect]
     Indication: BLADDER CANCER
     Dosage: NOT REPORTED
     Route: 043

REACTIONS (9)
  - ABSCESS [None]
  - CONTRACTED BLADDER [None]
  - CREATINE URINE INCREASED [None]
  - DYSURIA [None]
  - POLLAKIURIA [None]
  - PYELONEPHRITIS [None]
  - RENAL IMPAIRMENT [None]
  - STRESS URINARY INCONTINENCE [None]
  - VESICOURETERIC REFLUX [None]
